FAERS Safety Report 26073431 (Version 1)
Quarter: 2025Q4

REPORT INFORMATION
  Report Type: Spontaneous
  Country: IN (occurrence: IN)
  Receive Date: 20251121
  Receipt Date: 20251121
  Transmission Date: 20260118
  Serious: Yes (Other)
  Sender: ALKEM
  Company Number: IN-ALKEM LABORATORIES LIMITED-IN-ALKEM-2025-08147

PATIENT
  Age: 59 Year
  Sex: Male

DRUGS (9)
  1. MINOCYCLINE [Suspect]
     Active Substance: MINOCYCLINE HYDROCHLORIDE
     Indication: Pyrexia
     Dosage: UNK
     Route: 065
  2. MINOCYCLINE [Suspect]
     Active Substance: MINOCYCLINE HYDROCHLORIDE
     Dosage: UNK (RESTARTED DOSE)
     Route: 065
  3. CEFTAZIDIME [Suspect]
     Active Substance: CEFTAZIDIME
     Indication: Pyrexia
     Dosage: UNK
     Route: 042
  4. SULFAMETHOXAZOLE\TRIMETHOPRIM [Suspect]
     Active Substance: SULFAMETHOXAZOLE\TRIMETHOPRIM
     Indication: Pyrexia
     Dosage: UNK
     Route: 048
  5. CEFIXIME [Concomitant]
     Active Substance: CEFIXIME
     Indication: Evidence based treatment
     Dosage: UNK
     Route: 065
  6. MEROPENEM [Concomitant]
     Active Substance: MEROPENEM
     Indication: Pyrexia
     Dosage: UNK
     Route: 065
  7. Levonadifloxacin [Concomitant]
     Indication: Salvage therapy
  8. Levonadifloxacin [Concomitant]
     Indication: Burkholderia pseudomallei infection
  9. Levonadifloxacin [Concomitant]
     Indication: Osteomyelitis

REACTIONS (2)
  - Drug reaction with eosinophilia and systemic symptoms [Unknown]
  - Decreased appetite [Unknown]
